FAERS Safety Report 18879999 (Version 1)
Quarter: 2021Q1

REPORT INFORMATION
  Report Type: Report from Study
  Country: US (occurrence: US)
  Receive Date: 20210211
  Receipt Date: 20210211
  Transmission Date: 20210420
  Serious: Yes (Other)
  Sender: FDA-Public Use
  Company Number: US-PFIZER INC-2020513664

PATIENT
  Age: 49 Year
  Sex: Female

DRUGS (7)
  1. TURKEY TAIL MUSHROOM [Concomitant]
     Indication: IMMUNE ENHANCEMENT THERAPY
  2. LETROZOLE. [Concomitant]
     Active Substance: LETROZOLE
     Dosage: UNK, DAILY
  3. COLLAGEN [Concomitant]
     Active Substance: COLLAGEN
     Indication: BONE DISORDER
     Dosage: UNK
  4. IBRANCE [Suspect]
     Active Substance: PALBOCICLIB
     Indication: BREAST CANCER FEMALE
     Dosage: 75 MG, CYCLIC (21 DAYS AND OFF 7 DAYS )
     Route: 048
     Dates: start: 20200814
  5. MARIJUANA [Concomitant]
     Active Substance: CANNABIS SATIVA SUBSP. INDICA TOP
     Indication: DECREASED APPETITE
     Dosage: UNK
  6. IBRANCE [Suspect]
     Active Substance: PALBOCICLIB
     Dosage: 75 MG, CYCLIC (21 DAYS AND OFF 7 DAYS )
     Route: 048
     Dates: start: 20200817
  7. TURKEY TAIL MUSHROOM [Concomitant]
     Indication: WHITE BLOOD CELL COUNT ABNORMAL
     Dosage: UNK

REACTIONS (6)
  - Myelosuppression [Recovered/Resolved]
  - Blood count abnormal [Unknown]
  - Lymphadenopathy [Unknown]
  - Hot flush [Unknown]
  - Breast pain [Unknown]
  - Hyperhidrosis [Unknown]

NARRATIVE: CASE EVENT DATE: 20201217
